FAERS Safety Report 24410785 (Version 2)
Quarter: 2025Q2

REPORT INFORMATION
  Report Type: Spontaneous
  Country: US (occurrence: US)
  Receive Date: 20241008
  Receipt Date: 20250529
  Transmission Date: 20250717
  Serious: Yes (Hospitalization)
  Sender: SCPHARMACEUTICALS
  Company Number: US-SCPHARMACEUTICALS-2024-SCPH-US000473

PATIENT

DRUGS (19)
  1. FUROSCIX [Suspect]
     Active Substance: FUROSEMIDE
     Indication: Hypervolaemia
     Route: 058
     Dates: start: 20240715, end: 20240715
  2. FUROSCIX [Suspect]
     Active Substance: FUROSEMIDE
     Route: 058
     Dates: start: 20240719, end: 20240719
  3. FUROSCIX [Suspect]
     Active Substance: FUROSEMIDE
     Route: 058
     Dates: start: 20240723, end: 20240723
  4. FUROSCIX [Suspect]
     Active Substance: FUROSEMIDE
     Route: 058
     Dates: start: 20240724, end: 20240724
  5. FUROSCIX [Suspect]
     Active Substance: FUROSEMIDE
     Route: 058
     Dates: start: 20240801, end: 20240801
  6. FUROSCIX [Suspect]
     Active Substance: FUROSEMIDE
     Route: 058
     Dates: start: 20240804, end: 20240804
  7. FUROSCIX [Suspect]
     Active Substance: FUROSEMIDE
     Route: 058
     Dates: start: 20240805, end: 20240805
  8. FUROSCIX [Suspect]
     Active Substance: FUROSEMIDE
     Route: 058
     Dates: start: 20240806, end: 20240806
  9. FUROSCIX [Suspect]
     Active Substance: FUROSEMIDE
     Dosage: 160 MG, 1/WEEK
     Route: 058
     Dates: start: 20240827
  10. VYNDAMAX [Concomitant]
     Active Substance: TAFAMIDIS
     Dosage: 60 MG, DAILY
  11. FUROSEMIDE [Concomitant]
     Active Substance: FUROSEMIDE
     Dosage: 60 MG, BID
     Route: 048
     Dates: end: 2024
  12. VITAMINS [Concomitant]
     Active Substance: VITAMINS
     Dosage: UNK, DAILY
  13. VITAMIN D3 [Concomitant]
     Active Substance: CHOLECALCIFEROL
     Dosage: UNK, DAILY
  14. VITAMIN B COMPLEX [Concomitant]
     Active Substance: CYANOCOBALAMIN\DEXPANTHENOL\NIACINAMIDE\PYRIDOXINE HYDROCHLORIDE\RIBOFLAVIN 5^-PHOSPHATE SODIUM\THIA
     Dosage: UNK, DAILY
  15. FISH OIL [Concomitant]
     Active Substance: FISH OIL
     Dosage: UNK, DAILY
  16. ZINC [Concomitant]
     Active Substance: ZINC
     Dosage: UNK, DAILY
  17. CLARITIN [Concomitant]
     Active Substance: LORATADINE
     Dosage: UNK, DAILY
  18. STOOL SOFTENER (DOCUSATE) [Concomitant]
     Active Substance: DOCUSATE
     Dosage: UNK, DAILY
  19. MAGNESIUM [Concomitant]
     Active Substance: MAGNESIUM
     Dosage: UNK, DAILY

REACTIONS (4)
  - Condition aggravated [Not Recovered/Not Resolved]
  - Therapeutic product effect decreased [Recovered/Resolved]
  - Dry throat [Recovered/Resolved]
  - Dry mouth [Recovered/Resolved]

NARRATIVE: CASE EVENT DATE: 20240806
